FAERS Safety Report 22612987 (Version 1)
Quarter: 2023Q2

REPORT INFORMATION
  Report Type: Spontaneous
  Country: US (occurrence: US)
  Receive Date: 20230618
  Receipt Date: 20230618
  Transmission Date: 20230722
  Serious: Yes (Death, Hospitalization, Other)
  Sender: FDA-Public Use
  Company Number: US-ALXN-A202308029

PATIENT
  Age: 34 Year
  Sex: Male

DRUGS (2)
  1. SOLIRIS [Suspect]
     Active Substance: ECULIZUMAB
     Indication: Atypical haemolytic uraemic syndrome
     Dosage: UNK
     Route: 065
  2. PREDNISONE [Concomitant]
     Active Substance: PREDNISONE
     Indication: Product used for unknown indication
     Dosage: UNK
     Route: 065

REACTIONS (11)
  - Upper gastrointestinal haemorrhage [Fatal]
  - Lower gastrointestinal haemorrhage [Fatal]
  - Acute respiratory failure [Unknown]
  - Encephalopathy [Unknown]
  - Thrombocytopenia [Unknown]
  - Septic shock [Unknown]
  - Malnutrition [Unknown]
  - Muscle atrophy [Unknown]
  - Peripheral swelling [Unknown]
  - Dyspnoea [Unknown]
  - Abdominal pain [Unknown]
